FAERS Safety Report 10078629 (Version 1)
Quarter: 2014Q2

REPORT INFORMATION
  Report Type: Spontaneous
  Country: US (occurrence: None)
  Receive Date: 20140414
  Receipt Date: 20140414
  Transmission Date: 20141212
  Serious: Yes (Life-Threatening, Hospitalization)
  Sender: FDA-Public Use
  Company Number: None

PATIENT
  Age: 49 Year
  Sex: Male
  Weight: 61.6 kg

DRUGS (4)
  1. WARFARIN [Suspect]
     Indication: ATRIAL FIBRILLATION
     Dates: start: 20130101, end: 20140121
  2. WARFARIN [Suspect]
     Indication: AORTIC VALVE REPLACEMENT
     Dates: start: 20130101, end: 20140121
  3. ASPIRIN [Suspect]
     Indication: CARDIAC DISORDER
     Route: 048
     Dates: start: 20130213, end: 20140325
  4. ASPIRIN [Suspect]
     Route: 048
     Dates: start: 20130213, end: 20140325

REACTIONS (3)
  - Subdural haematoma [None]
  - Fall [None]
  - Brain midline shift [None]
